FAERS Safety Report 21278449 (Version 1)
Quarter: 2022Q3

REPORT INFORMATION
  Report Type: Spontaneous
  Country: GB (occurrence: GB)
  Receive Date: 20220831
  Receipt Date: 20220831
  Transmission Date: 20221026
  Serious: Yes (Disabling, Other)
  Sender: FDA-Public Use
  Company Number: None

PATIENT
  Age: 87 Year
  Sex: Female
  Weight: 67 kg

DRUGS (12)
  1. BEMPEDOIC ACID [Suspect]
     Active Substance: BEMPEDOIC ACID
     Indication: Product used for unknown indication
     Dosage: 180 MG, QD (TAKE ONE DAILY)
     Route: 065
     Dates: start: 20220809
  2. CLOPIDOGREL [Concomitant]
     Active Substance: CLOPIDOGREL BISULFATE
     Indication: Product used for unknown indication
     Dosage: 1 DF, QD (TAKE ONE ONCE DAILY)
     Route: 065
     Dates: start: 20220511
  3. CODEINE PHOSPHATE [Concomitant]
     Active Substance: CODEINE PHOSPHATE
     Indication: Product used for unknown indication
     Dosage: 1-2 QDS, (PRN) AS NEEDED
     Route: 065
     Dates: start: 20220511
  4. DOCUSATE SODIUM [Concomitant]
     Active Substance: DOCUSATE SODIUM
     Indication: Product used for unknown indication
     Dosage: 2 DF, QD (2 ON)
     Route: 065
     Dates: start: 20220511
  5. DOXAZOSIN [Concomitant]
     Active Substance: DOXAZOSIN MESYLATE
     Indication: Product used for unknown indication
     Dosage: REDUCING DOSE AS PER PLAN SHARED WIHT YOU
     Route: 065
     Dates: start: 20220511
  6. LANSOPRAZOLE [Concomitant]
     Active Substance: LANSOPRAZOLE
     Indication: Product used for unknown indication
     Dosage: 1 DF, QD (TAKE ONE ONCE DAILY)
     Route: 065
     Dates: start: 20220511
  7. LISINOPRIL [Concomitant]
     Active Substance: LISINOPRIL
     Indication: Product used for unknown indication
     Dosage: 1 DF, QD (1 EVERY DAY)
     Route: 065
     Dates: start: 20220511
  8. LOPERAMIDE [Concomitant]
     Active Substance: LOPERAMIDE
     Indication: Product used for unknown indication
     Dosage: UNK (TAKE ONE OR TWO AS DIRECTED)
     Route: 065
     Dates: start: 20220511
  9. NITROFURANTOIN [Concomitant]
     Active Substance: NITROFURANTOIN
     Indication: Product used for unknown indication
     Dosage: 4 DF, QD (TAKE 4 TABLETS DAILY FOR 5 DAYS AS DIRECTED BY)
     Route: 065
     Dates: start: 20220511
  10. ACETAMINOPHEN [Concomitant]
     Active Substance: ACETAMINOPHEN
     Indication: Product used for unknown indication
     Dosage: TAKE 1 OR 2, QID (4 TIMES/DAY)
     Route: 065
     Dates: start: 20220511
  11. PROCHLORPERAZINE [Concomitant]
     Active Substance: PROCHLORPERAZINE
     Indication: Dizziness
     Dosage: 1 DF, AS NEEDED (1 ONCE A DAY WHEN NEEDED TO CONTROL DIZZINESS)
     Route: 065
     Dates: start: 20220705
  12. SENNA LEAF [Concomitant]
     Active Substance: SENNA LEAF
     Indication: Gastrointestinal motility disorder
     Dosage: UNK (1-4 AT NIGHT TO HELP KEEP BOWELS MOVING)
     Route: 065
     Dates: start: 20220511

REACTIONS (2)
  - Myalgia [Recovering/Resolving]
  - Arthralgia [Recovering/Resolving]

NARRATIVE: CASE EVENT DATE: 20220811
